FAERS Safety Report 10854556 (Version 1)
Quarter: 2015Q1

REPORT INFORMATION
  Report Type: Other
  Country: IT (occurrence: IT)
  Receive Date: 20150223
  Receipt Date: 20150223
  Transmission Date: 20150721
  Serious: Yes (Other)
  Sender: FDA-Public Use
  Company Number: IT-SUN PHARMACEUTICAL INDUSTRIES LTD-2015SUN00511

PATIENT

DRUGS (4)
  1. BACLOFEN. [Suspect]
     Active Substance: BACLOFEN
     Indication: HYPERTONIA
     Dosage: 80 MCG DAILY
     Route: 037
     Dates: start: 20141128, end: 20150122
  2. BENTELAN 0.5 MG [Concomitant]
     Dosage: 1 MG
     Route: 048
  3. RANIDIL 150 MG/10 ML [Concomitant]
     Dosage: 10 ML
     Route: 048
  4. LUMINALE 15 MG [Concomitant]
     Dosage: 60 MG
     Route: 048

REACTIONS (1)
  - Sinus bradycardia [Recovering/Resolving]

NARRATIVE: CASE EVENT DATE: 20141230
